FAERS Safety Report 7077329-4 (Version None)
Quarter: 2010Q4

REPORT INFORMATION
  Report Type: 
  Country: None (occurrence: None)
  Receive Date: 20101101
  Receipt Date: 20101017
  Transmission Date: 20110411
  Serious: Yes (Other)
  Sender: FDA-Public Use
  Company Number: TW-GENENTECH-308437

PATIENT
  Sex: Male

DRUGS (1)
  1. LUCENTIS [Suspect]
     Indication: EYE HAEMORRHAGE
     Dosage: UNK
     Route: 031

REACTIONS (1)
  - VISUAL IMPAIRMENT [None]
